FAERS Safety Report 5553946-5 (Version None)
Quarter: 2007Q4

REPORT INFORMATION
  Report Type: 
  Country: None (occurrence: None)
  Receive Date: 20071213
  Receipt Date: 20071203
  Transmission Date: 20080405
  Serious: Yes (Death, Hospitalization)
  Sender: FDA-Public Use
  Company Number: US-ELI_LILLY_AND_COMPANY-US200710006143

PATIENT
  Age: 71 Year
  Sex: Female
  Weight: 94.785 kg

DRUGS (4)
  1. ALIMTA [Suspect]
     Indication: NON-SMALL CELL LUNG CANCER STAGE IV
     Dosage: 975 MG, OTHER
     Dates: start: 20070724
  2. VITAMIN B-12 [Concomitant]
     Dosage: 1000 UG, UNK
     Route: 030
     Dates: start: 20070718
  3. FOLIC ACID [Concomitant]
     Dosage: 1 MG, DAILY (1/D)
     Route: 048
     Dates: start: 20070718
  4. DEXAMETHASONE TAB [Concomitant]
     Dosage: 4 MG, 2/D
     Route: 048
     Dates: start: 20070718

REACTIONS (6)
  - CHILLS [None]
  - FATIGUE [None]
  - HEPATIC INFARCTION [None]
  - MALIGNANT NEOPLASM PROGRESSION [None]
  - NAUSEA [None]
  - VOMITING [None]
